FAERS Safety Report 23189416 (Version 1)
Quarter: 2023Q4

REPORT INFORMATION
  Report Type: Spontaneous
  Country: CA (occurrence: CA)
  Receive Date: 20231116
  Receipt Date: 20231116
  Transmission Date: 20240109
  Serious: Yes (Death, Hospitalization)
  Sender: FDA-Public Use
  Company Number: CA-TEVA-2022-CA-2026598

PATIENT
  Age: 65 Year
  Sex: Male

DRUGS (4)
  1. TEMOZOLOMIDE [Suspect]
     Active Substance: TEMOZOLOMIDE
     Indication: Glioblastoma
     Route: 065
  2. DAPSONE [Concomitant]
     Active Substance: DAPSONE
  3. DEXAMETHASONE [Concomitant]
     Active Substance: DEXAMETHASONE
     Route: 065
  4. PHENYTOIN [Concomitant]
     Active Substance: PHENYTOIN

REACTIONS (3)
  - Bone marrow transplant [Fatal]
  - Gangrene [Fatal]
  - Thrombocytopenia [Fatal]
